FAERS Safety Report 11113716 (Version 3)
Quarter: 2016Q2

REPORT INFORMATION
  Report Type: Spontaneous
  Country: JP (occurrence: JP)
  Receive Date: 20150514
  Receipt Date: 20160616
  Transmission Date: 20160815
  Serious: Yes (Hospitalization, Other)
  Sender: FDA-Public Use
  Company Number: JP-GLAXOSMITHKLINE-JP2015JPN062741

PATIENT
  Age: 30 Year
  Sex: Female

DRUGS (4)
  1. LAMICTAL [Suspect]
     Active Substance: LAMOTRIGINE
     Dosage: 50 MG, 1D
     Route: 048
  2. LAMICTAL [Suspect]
     Active Substance: LAMOTRIGINE
     Indication: BIPOLAR DISORDER
     Dosage: 25 MG, QD
     Route: 048
  3. PL [Suspect]
     Active Substance: ACETAMINOPHEN\CAFFEINE\PROMETHAZINE\SALICYLAMIDE
     Route: 048
  4. CELESTAMINE [Concomitant]
     Active Substance: BETAMETHASONE\DEXCHLORPHENIRAMINE MALEATE

REACTIONS (13)
  - Vulvar erosion [Recovering/Resolving]
  - Oral mucosal blistering [Recovering/Resolving]
  - Pyrexia [Unknown]
  - Oral mucosa erosion [Recovering/Resolving]
  - Epidermal necrosis [Unknown]
  - Toxic epidermal necrolysis [Recovering/Resolving]
  - Lip oedema [Recovering/Resolving]
  - Dyspnoea [Unknown]
  - Dermatitis bullous [Recovering/Resolving]
  - Enanthema [Recovering/Resolving]
  - Skin erosion [Recovering/Resolving]
  - Ocular hyperaemia [Recovering/Resolving]
  - Nasopharyngitis [Unknown]
